FAERS Safety Report 7971607-X (Version None)
Quarter: 2011Q4

REPORT INFORMATION
  Report Type: 
  Country: None (occurrence: None)
  Receive Date: 20111212
  Receipt Date: 20111202
  Transmission Date: 20120403
  Serious: Yes (Death)
  Sender: FDA-Public Use
  Company Number: US-PURDUE-USA-2011-0079164

PATIENT
  Sex: Male

DRUGS (1)
  1. BUTRANS [Suspect]
     Dosage: 5 MCG, Q1H

REACTIONS (1)
  - NEOPLASM MALIGNANT [None]
